FAERS Safety Report 6224846-2 (Version None)
Quarter: 2009Q2

REPORT INFORMATION
  Report Type: 
  Country: None (occurrence: None)
  Receive Date: 20090612
  Receipt Date: 20090331
  Transmission Date: 20091009
  Serious: No
  Sender: FDA-Public Use
  Company Number: US-ABBOTT-09P-163-0565817-00

PATIENT
  Sex: Male

DRUGS (4)
  1. HUMIRA [Suspect]
     Indication: PSORIASIS
     Dates: start: 20090202
  2. HUMIRA [Suspect]
     Indication: PSORIATIC ARTHROPATHY
  3. SORIATANE [Suspect]
     Indication: DRUG USE FOR UNKNOWN INDICATION
  4. SORIATANE [Suspect]

REACTIONS (5)
  - ALOPECIA [None]
  - CHAPPED LIPS [None]
  - NAIL PITTING [None]
  - NASAL DRYNESS [None]
  - ONYCHOCLASIS [None]
